FAERS Safety Report 9712387 (Version 2)
Quarter: 2013Q4

REPORT INFORMATION
  Report Type: Spontaneous
  Country: US (occurrence: US)
  Receive Date: 20131126
  Receipt Date: 20131126
  Transmission Date: 20140711
  Serious: No
  Sender: FDA-Public Use
  Company Number: US-BRISTOL-MYERS SQUIBB COMPANY-18868349

PATIENT
  Age: 65 Year
  Sex: Female
  Weight: 77.1 kg

DRUGS (2)
  1. BYDUREON [Suspect]
     Indication: TYPE 2 DIABETES MELLITUS
     Dosage: BYDUREON INJECTION.LOT NO:73260,EXPDT:1FEB16
     Dates: start: 201303
  2. METFORMIN [Concomitant]

REACTIONS (3)
  - Injection site pain [Unknown]
  - Injury associated with device [Unknown]
  - Paraesthesia [Unknown]
